FAERS Safety Report 14739871 (Version 4)
Quarter: 2018Q2

REPORT INFORMATION
  Report Type: Spontaneous
  Country: US (occurrence: US)
  Receive Date: 20180410
  Receipt Date: 20180521
  Transmission Date: 20180711
  Serious: Yes (Hospitalization, Other)
  Sender: FDA-Public Use
  Company Number: US-PFIZER INC-2018144341

PATIENT
  Age: 76 Year
  Sex: Female
  Weight: 49 kg

DRUGS (1)
  1. XELJANZ [Suspect]
     Active Substance: TOFACITINIB CITRATE
     Indication: RHEUMATOID ARTHRITIS
     Dosage: 5 MG, 2X/DAY
     Route: 048
     Dates: start: 20180313, end: 201804

REACTIONS (9)
  - Hypertension [Unknown]
  - Pain [Unknown]
  - Hypotension [Recovered/Resolved]
  - Influenza [Unknown]
  - Dizziness [Recovered/Resolved]
  - Asthenia [Unknown]
  - Drug hypersensitivity [Unknown]
  - Pneumonia [Recovered/Resolved]
  - Headache [Unknown]

NARRATIVE: CASE EVENT DATE: 20180406
